FAERS Safety Report 7025189-X (Version None)
Quarter: 2010Q4

REPORT INFORMATION
  Report Type: 
  Country: None (occurrence: None)
  Receive Date: 20101001
  Receipt Date: 20100921
  Transmission Date: 20110411
  Serious: Yes (Other)
  Sender: FDA-Public Use
  Company Number: US-PFIZER INC-2010117012

PATIENT
  Sex: Female
  Weight: 84.807 kg

DRUGS (13)
  1. CHANTIX [Suspect]
     Indication: SMOKING CESSATION THERAPY
     Dosage: 0.5 MG, 1X/DAY
     Route: 048
     Dates: start: 20100909, end: 20100901
  2. CHANTIX [Suspect]
     Dosage: 1 MG, 2X/DAY
     Route: 048
     Dates: start: 20100901
  3. LISINOPRIL [Concomitant]
     Indication: HYPERTENSION
     Dosage: 20 MG, UNK
  4. METFORMIN [Concomitant]
     Indication: DIABETES MELLITUS
     Dosage: UNK
  5. ALPRAZOLAM [Concomitant]
     Dosage: 1 MG, UNK
  6. NEURONTIN [Concomitant]
     Dosage: 300 MG, 3X/DAY
  7. ALBUTEROL [Concomitant]
     Dosage: UNK
  8. IPRATROPIUM [Concomitant]
     Dosage: UNK
  9. ADVAIR DISKUS 100/50 [Concomitant]
     Dosage: 250/50 MG, UNK
  10. SPIRIVA [Concomitant]
     Dosage: UNK, DAILY
  11. LORCET-HD [Concomitant]
     Dosage: 10 MG, 2X/DAY
  12. PRAVASTATIN [Concomitant]
     Dosage: 40 MG, UNK
  13. ACETYLSALICYLIC ACID [Concomitant]
     Dosage: 81 MG, UNK

REACTIONS (2)
  - NERVOUSNESS [None]
  - SKIN LESION [None]
